FAERS Safety Report 16389716 (Version 1)
Quarter: 2019Q3

REPORT INFORMATION
  Report Type: Spontaneous
  Country: US (occurrence: US)
  Receive Date: 20190603
  Receipt Date: 20190603
  Transmission Date: 20191004
  Serious: Yes (Hospitalization)
  Sender: FDA-Public Use
  Company Number: None

PATIENT
  Age: 63 Year
  Sex: Male

DRUGS (6)
  1. GLATIRAMER [Suspect]
     Active Substance: GLATIRAMER
     Route: 058
     Dates: start: 20190117
  2. BISACODYL, ASPIRIN, LIPITOR [Concomitant]
  3. PERCOCET, LANTUS [Concomitant]
  4. PROTONIX, COLACE, MILK OF MAGNESIA, [Concomitant]
  5. NOVOLOG, SENNA LAX [Concomitant]
  6. MOBIC, PLAVIX, SYSTANE, [Concomitant]

REACTIONS (1)
  - Hospitalisation [None]

NARRATIVE: CASE EVENT DATE: 20190531
